FAERS Safety Report 8539748-6 (Version None)
Quarter: 2012Q3

REPORT INFORMATION
  Report Type: 
  Country: None (occurrence: None)
  Receive Date: 20120726
  Receipt Date: 20110826
  Transmission Date: 20120928
  Serious: No
  Sender: FDA-Public Use
  Company Number: US-ASTRAZENECA-2010SE13863

PATIENT
  Age: 58 Year
  Sex: Female
  Weight: 68 kg

DRUGS (2)
  1. SEROQUEL [Suspect]
     Indication: DEPRESSION
     Route: 048
  2. SEROQUEL [Suspect]
     Route: 048
     Dates: start: 20010101, end: 20100328

REACTIONS (8)
  - ABDOMINAL DISCOMFORT [None]
  - DRUG DOSE OMISSION [None]
  - DRUG WITHDRAWAL SYNDROME [None]
  - OFF LABEL USE [None]
  - FEELING ABNORMAL [None]
  - INSOMNIA [None]
  - FEELING JITTERY [None]
  - STRESS [None]
